FAERS Safety Report 5854219-3 (Version None)
Quarter: 2008Q3

REPORT INFORMATION
  Report Type: 
  Country: None (occurrence: None)
  Receive Date: 20080822
  Receipt Date: 20080815
  Transmission Date: 20090109
  Serious: Yes (Other)
  Sender: FDA-Public Use
  Company Number: PHHY2008SK16875

PATIENT
  Sex: Male

DRUGS (4)
  1. ZOMETA [Suspect]
     Indication: METASTASES TO BONE
     Dosage: 4 MG, QMO
     Route: 042
  2. ANDROGENS [Concomitant]
  3. DIPHERELINE/ TRIPTORELIN ACETATE [Concomitant]
  4. ANDROCUR [Concomitant]

REACTIONS (2)
  - ORAL DISORDER [None]
  - OSTEONECROSIS [None]
